FAERS Safety Report 17999446 (Version 1)
Quarter: 2020Q3

REPORT INFORMATION
  Report Type: Spontaneous
  Country: ES (occurrence: ES)
  Receive Date: 20200709
  Receipt Date: 20200709
  Transmission Date: 20201103
  Serious: Yes (Life-Threatening, Other)
  Sender: FDA-Public Use
  Company Number: NVSC2020ES190183

PATIENT
  Age: 77 Year
  Sex: Female

DRUGS (8)
  1. OMEPRAZOL [Concomitant]
     Active Substance: OMEPRAZOLE
     Indication: PRODUCT USED FOR UNKNOWN INDICATION
     Dosage: UNK
     Route: 065
     Dates: start: 20200402, end: 20200414
  2. URBASON [Concomitant]
     Active Substance: METHYLPREDNISOLONE
     Indication: PRODUCT USED FOR UNKNOWN INDICATION
     Dosage: UNK (40 MG PRIMERO CADA 8 HORAS, A LOS  5 DIAS CADA 12)
     Route: 065
     Dates: start: 20200402, end: 20200414
  3. HYDROXYCHLOROQUINE [Suspect]
     Active Substance: HYDROXYCHLOROQUINE
     Indication: COVID-19
     Dosage: UNK (800 MG 1 DIA + 400 MG EL RESTO)
     Route: 048
     Dates: start: 20200402, end: 20200413
  4. LEVOFLOXACIN. [Suspect]
     Active Substance: LEVOFLOXACIN
     Indication: COVID-19
     Dosage: UNK (500 MG/12 HORAS)
     Route: 065
     Dates: start: 20200402, end: 20200408
  5. LOPINAVIR + RITONAVIR [Suspect]
     Active Substance: LOPINAVIR\RITONAVIR
     Indication: COVID-19
     Dosage: UNK (200/20 CUATRO VECES AL DIA)
     Route: 065
     Dates: start: 20200402, end: 20200413
  6. VENTOLIN [Concomitant]
     Active Substance: ALBUTEROL SULFATE
     Indication: PRODUCT USED FOR UNKNOWN INDICATION
     Dosage: UNK
     Route: 065
     Dates: start: 20200402, end: 20200414
  7. PULMICORT TURBUHALER [Concomitant]
     Active Substance: BUDESONIDE
     Indication: PRODUCT USED FOR UNKNOWN INDICATION
     Dosage: 2 PUFF CADA 8 HORAS
     Route: 065
     Dates: start: 20200402, end: 20200414
  8. CLEXANE [Concomitant]
     Active Substance: ENOXAPARIN SODIUM
     Indication: PRODUCT USED FOR UNKNOWN INDICATION
     Dosage: UNK (40/24 HORAS)
     Route: 065
     Dates: start: 20200402, end: 20200414

REACTIONS (6)
  - Blood creatine phosphokinase increased [Recovered/Resolved]
  - Disorientation [Recovered/Resolved]
  - Agitation [Recovered/Resolved]
  - Urinary retention [Recovered/Resolved]
  - Hyperbilirubinaemia [Recovered/Resolved]
  - Liver function test abnormal [Recovered/Resolved]

NARRATIVE: CASE EVENT DATE: 20200403
